FAERS Safety Report 5591252-3 (Version None)
Quarter: 2008Q1

REPORT INFORMATION
  Report Type: 
  Country: None (occurrence: None)
  Receive Date: 20080115
  Receipt Date: 20080110
  Transmission Date: 20080703
  Serious: Yes (Death)
  Sender: FDA-Public Use
  Company Number: JP-AVENTIS-200810085JP

PATIENT

DRUGS (1)
  1. TAXOTERE [Suspect]

REACTIONS (1)
  - CARDIAC FAILURE [None]
